FAERS Safety Report 4647127-7 (Version None)
Quarter: 2005Q2

REPORT INFORMATION
  Report Type: 
  Country: None (occurrence: None)
  Receive Date: 20050428
  Receipt Date: 20050418
  Transmission Date: 20051028
  Serious: Yes (Other)
  Sender: FDA-Public Use
  Company Number: US-JNJFOC-20050404287

PATIENT
  Age: 79 Year
  Sex: Male

DRUGS (1)
  1. REMICADE [Suspect]
     Indication: RHEUMATOID ARTHRITIS
     Dosage: FIRST DOSE 6 WEEKS AGO, SECOND DOSE 4 WEEKS AGO.  PATIENT RECIEVED A TOTAL OF TWO DOSES.
     Route: 042

REACTIONS (3)
  - BLINDNESS [None]
  - DEAFNESS [None]
  - INFUSION RELATED REACTION [None]
